FAERS Safety Report 15812916 (Version 1)
Quarter: 2019Q1

REPORT INFORMATION
  Report Type: Spontaneous
  Country: US (occurrence: US)
  Receive Date: 20190111
  Receipt Date: 20190111
  Transmission Date: 20190417
  Serious: Yes (Death, Hospitalization)
  Sender: FDA-Public Use
  Company Number: US-BAYER-2019-009193

PATIENT
  Age: 52 Year
  Sex: Female

DRUGS (2)
  1. PARACETAMOL [Suspect]
     Active Substance: ACETAMINOPHEN
  2. ISONIAZID. [Suspect]
     Active Substance: ISONIAZID
     Route: 048

REACTIONS (2)
  - Toxicity to various agents [Fatal]
  - Adverse drug reaction [Fatal]
